FAERS Safety Report 9129654 (Version 1)
Quarter: 2013Q1

REPORT INFORMATION
  Report Type: Spontaneous
  Country: JP (occurrence: JP)
  Receive Date: 20130125
  Receipt Date: 20130125
  Transmission Date: 20140127
  Serious: Yes (Death, Hospitalization)
  Sender: FDA-Public Use
  Company Number: JP-ALEXION-A201300054

PATIENT
  Age: 83 Year
  Sex: Male

DRUGS (2)
  1. SOLIRIS 300MG [Suspect]
     Indication: PAROXYSMAL NOCTURNAL HAEMOGLOBINURIA
     Dosage: 900 MG, Q2W
     Route: 042
     Dates: end: 201212
  2. BLOOD AND RELATED PRODUCTS [Concomitant]

REACTIONS (3)
  - Influenza [Fatal]
  - Compression fracture [Unknown]
  - Cardiac failure [Fatal]
